FAERS Safety Report 20804163 (Version 1)
Quarter: 2022Q2

REPORT INFORMATION
  Report Type: Spontaneous
  Country: FI (occurrence: FI)
  Receive Date: 20220509
  Receipt Date: 20220509
  Transmission Date: 20220721
  Serious: Yes (Life-Threatening, Other)
  Sender: FDA-Public Use
  Company Number: None

PATIENT
  Age: 35 Year
  Sex: Male

DRUGS (11)
  1. CLOZAPINE [Suspect]
     Active Substance: CLOZAPINE
     Indication: Schizoaffective disorder
     Dosage: UNK
     Route: 048
     Dates: start: 20211209, end: 20211228
  2. Temesta [Concomitant]
     Indication: Anxiety
     Dosage: UNK
     Route: 048
     Dates: start: 2021, end: 2022
  3. Panadol forte [Concomitant]
     Indication: Pain
     Dosage: UNK
     Route: 048
     Dates: start: 20211223, end: 20211226
  4. ESCITALOPRAM [Concomitant]
     Active Substance: ESCITALOPRAM OXALATE
     Indication: Depression
     Dosage: 20 MILLIGRAM, QD (20,MG,DAILY )
     Route: 048
     Dates: start: 2019, end: 2022
  5. AMLODIPINE [Concomitant]
     Active Substance: AMLODIPINE BESYLATE
     Indication: Hypertension
     Dosage: 5 MILLIGRAM, QD (5,MG,DAILY)
     Route: 048
     Dates: start: 2020
  6. SIMVASTATIN [Concomitant]
     Active Substance: SIMVASTATIN
     Indication: Hypercholesterolaemia
     Dosage: 40 MILLIGRAM, QD (40,MG,DAILY )
     Route: 048
     Dates: start: 2020
  7. CHOLECALCIFEROL [Concomitant]
     Active Substance: CHOLECALCIFEROL
     Indication: Hypovitaminosis
     Dosage: 20 MICROGRAM, QD (20,?G,DAILY)
     Route: 048
     Dates: start: 2019
  8. Cardace [Concomitant]
     Indication: Hypertension
     Dosage: 5 MILLIGRAM, QD (5,MG,DAILY)
     Route: 048
     Dates: start: 2020
  9. OLANZAPINE [Concomitant]
     Active Substance: OLANZAPINE
     Indication: Schizoaffective disorder
     Dosage: 20 MILLIGRAM, QD (20,MG,DAILY)
     Route: 048
     Dates: start: 2021
  10. METFORMIN HYDROCHLORIDE [Concomitant]
     Active Substance: METFORMIN HYDROCHLORIDE
     Indication: Type 2 diabetes mellitus
     Dosage: 1 GRAM, QD (MODIFIED-RELEASE FILM-COATED TABLET)
     Route: 048
     Dates: start: 2020
  11. JARDIANCE [Concomitant]
     Active Substance: EMPAGLIFLOZIN
     Indication: Type 2 diabetes mellitus
     Dosage: 10 MILLIGRAM, QD
     Route: 048
     Dates: start: 2020

REACTIONS (4)
  - Troponin increased [Recovered/Resolved]
  - C-reactive protein increased [Recovered/Resolved]
  - Influenza like illness [Recovered/Resolved]
  - Headache [Recovered/Resolved]

NARRATIVE: CASE EVENT DATE: 20211220
